FAERS Safety Report 18322770 (Version 1)
Quarter: 2020Q3

REPORT INFORMATION
  Report Type: Spontaneous
  Country: FR (occurrence: FR)
  Receive Date: 20200929
  Receipt Date: 20200929
  Transmission Date: 20201103
  Serious: Yes (Hospitalization)
  Sender: FDA-Public Use
  Company Number: FR-ACCORD-203072

PATIENT
  Age: 72 Year
  Sex: Male
  Weight: 81.5 kg

DRUGS (18)
  1. FILGASTRIM AMGEN [Concomitant]
  2. VENTOLINE [Concomitant]
     Active Substance: ALBUTEROL
  3. CARBOPLATINE ACCORD [Suspect]
     Active Substance: CARBOPLATIN
     Indication: SMALL CELL LUNG CANCER
     Route: 041
     Dates: start: 20200523
  4. LOVENOX [Concomitant]
     Active Substance: ENOXAPARIN SODIUM
  5. KARDEGIC [Concomitant]
     Active Substance: ASPIRIN DL-LYSINE
  6. TOUJEO [Concomitant]
     Active Substance: INSULIN GLARGINE
  7. ATROVENT [Concomitant]
     Active Substance: IPRATROPIUM BROMIDE
  8. SAXAGLIPTIN [Concomitant]
     Active Substance: SAXAGLIPTIN
  9. PLAVIX [Concomitant]
     Active Substance: CLOPIDOGREL BISULFATE
  10. NOVONORM [Concomitant]
     Active Substance: REPAGLINIDE
  11. TAHOR [Concomitant]
     Active Substance: ATORVASTATIN CALCIUM
  12. ETOPOSIDE MYLAN [Suspect]
     Active Substance: ETOPOSIDE
     Indication: SMALL CELL LUNG CANCER
     Dosage: STRENGTH: 20 MG/ML
     Route: 041
     Dates: start: 20200523
  13. DIAMICRON [Concomitant]
     Active Substance: GLICLAZIDE
  14. TAMSULOSIN [Concomitant]
     Active Substance: TAMSULOSIN
  15. LANSOPRAZOLE MYLAN [Concomitant]
     Active Substance: LANSOPRAZOLE
  16. ULTIBRO BREEZHALER [Concomitant]
     Active Substance: GLYCOPYRRONIUM\INDACATEROL
  17. HUMALOG [Concomitant]
     Active Substance: INSULIN LISPRO
  18. TENORMINE [Concomitant]
     Active Substance: ATENOLOL

REACTIONS (1)
  - Diabetes mellitus inadequate control [Recovered/Resolved]

NARRATIVE: CASE EVENT DATE: 20200613
